FAERS Safety Report 6406188-5 (Version None)
Quarter: 2009Q4

REPORT INFORMATION
  Report Type: 
  Country: None (occurrence: None)
  Receive Date: 20091014
  Receipt Date: 20090925
  Transmission Date: 20100525
  Serious: Yes (Hospitalization, Other)
  Sender: FDA-Public Use
  Company Number: JPI-P-008689

PATIENT
  Age: 51 Year
  Sex: Male
  Weight: 83.9154 kg

DRUGS (8)
  1. LUVOX [Suspect]
     Indication: OBSESSIVE-COMPULSIVE DISORDER
     Dosage: 200 MG (100 MG,2 IN 1 D),ORAL ; 300 MG (150 MG,2 IN 1 D),ORAL
     Route: 048
     Dates: start: 20080901, end: 20090101
  2. LUVOX [Suspect]
     Indication: OBSESSIVE-COMPULSIVE DISORDER
     Dosage: 200 MG (100 MG,2 IN 1 D),ORAL ; 300 MG (150 MG,2 IN 1 D),ORAL
     Route: 048
     Dates: start: 20090101
  3. TELMISARTAN [Concomitant]
  4. METOPROLOL [Concomitant]
  5. CLONAZEPAM [Concomitant]
  6. DIVALPROEX SODIUM [Concomitant]
  7. EZETIMIBE AND SIMVASTATIN [Concomitant]
  8. ALPRAZOLAM [Concomitant]

REACTIONS (10)
  - ANGER [None]
  - BIPOLAR DISORDER [None]
  - BLOOD PRESSURE INADEQUATELY CONTROLLED [None]
  - CHEST PAIN [None]
  - CORONARY ARTERY DISEASE [None]
  - CORONARY ARTERY OCCLUSION [None]
  - DIZZINESS [None]
  - EMOTIONAL DISORDER [None]
  - NIGHTMARE [None]
  - STRESS AT WORK [None]
